FAERS Safety Report 20060469 (Version 1)
Quarter: 2021Q4

REPORT INFORMATION
  Report Type: Spontaneous
  Country: US (occurrence: US)
  Receive Date: 20211112
  Receipt Date: 20211112
  Transmission Date: 20220303
  Serious: Yes (Other)
  Sender: FDA-Public Use
  Company Number: US-SA-SAC20211109001490

PATIENT
  Age: 17 Year
  Sex: Male

DRUGS (2)
  1. ALPROLIX [Suspect]
     Active Substance: EFTRENONACOG ALFA
     Dosage: 3000 U IN EVERY 10 DAYS AND AS REQUIRED
     Route: 042
  2. ALPROLIX [Suspect]
     Active Substance: EFTRENONACOG ALFA
     Dosage: 3000 U IN EVERY 10 DAYS AND AS REQUIRED
     Route: 042

REACTIONS (3)
  - Haemorrhage [Recovered/Resolved]
  - Injury [Unknown]
  - Contusion [Unknown]

NARRATIVE: CASE EVENT DATE: 20211025
